FAERS Safety Report 8832099 (Version 1)
Quarter: 2012Q4

REPORT INFORMATION
  Report Type: 
  Country: US (occurrence: US)
  Receive Date: 20121009
  Receipt Date: 20121009
  Transmission Date: 20130627
  Serious: Yes (Other)
  Sender: FDA-Public Use
  Company Number: US-GENZYME-LEUK-1000307

PATIENT
  Age: 67 Year
  Sex: Male
  Weight: 86.73 kg

DRUGS (4)
  1. LEUKINE [Suspect]
     Indication: MALIGNANT MELANOMA
     Dosage: 250 mcg, qd on days 1-14 (Induction therapy: cycles 1-4)
     Route: 058
     Dates: start: 20110628
  2. LEUKINE [Suspect]
     Dosage: 250 mcg, qd, on days 1-14 (Maintenance therapy: cycles 5+)
     Route: 058
     Dates: start: 20110830
  3. IPILIMUMAB [Suspect]
     Indication: MALIGNANT MELANOMA
     Dosage: 10 mg/kg, once (over 90 min on day 1)
     Route: 042
     Dates: start: 20110628
  4. IPILIMUMAB [Suspect]
     Dosage: 10 mg/kg, over 90 min on day 1 Q12)
     Route: 042
     Dates: start: 20110830

REACTIONS (3)
  - Hypophysitis [Unknown]
  - Dizziness [Recovered/Resolved]
  - Headache [Not Recovered/Not Resolved]
